FAERS Safety Report 7780481-6 (Version None)
Quarter: 2011Q3

REPORT INFORMATION
  Report Type: 
  Country: None (occurrence: None)
  Receive Date: 20110927
  Receipt Date: 20110627
  Transmission Date: 20111222
  Serious: No
  Sender: FDA-Public Use
  Company Number: US-GLAXOSMITHKLINE-A0934607A

PATIENT
  Age: 42 Year
  Sex: Female

DRUGS (1)
  1. LAMICTAL XR [Suspect]
     Indication: PRODUCT USED FOR UNKNOWN INDICATION
     Dosage: 50MG UNKNOWN
     Route: 065
     Dates: start: 20110620

REACTIONS (2)
  - PYREXIA [None]
  - HEADACHE [None]
